FAERS Safety Report 11298627 (Version 1)
Quarter: 2015Q3

REPORT INFORMATION
  Report Type: Spontaneous
  Country: US (occurrence: US)
  Receive Date: 20150722
  Receipt Date: 20150722
  Transmission Date: 20151125
  Serious: No
  Sender: FDA-Public Use
  Company Number: US-ELI_LILLY_AND_COMPANY-US201202000743

PATIENT
  Sex: Female
  Weight: 48.53 kg

DRUGS (1)
  1. EVISTA [Suspect]
     Active Substance: RALOXIFENE HYDROCHLORIDE
     Indication: OSTEOPOROSIS
     Dosage: UNK
     Dates: start: 20110906

REACTIONS (4)
  - Weight decreased [Recovered/Resolved]
  - Arthralgia [Recovered/Resolved]
  - Decreased appetite [Recovered/Resolved]
  - Intentional product misuse [Unknown]
